FAERS Safety Report 13275666 (Version 1)
Quarter: 2017Q1

REPORT INFORMATION
  Report Type: Spontaneous
  Country: US (occurrence: US)
  Receive Date: 20170227
  Receipt Date: 20170227
  Transmission Date: 20170428
  Serious: Yes (Hospitalization, Disabling)
  Sender: FDA-Public Use
  Company Number: None

PATIENT
  Age: 37 Year
  Sex: Male
  Weight: 73.2 kg

DRUGS (3)
  1. CARBAMAZEPINE. [Suspect]
     Active Substance: CARBAMAZEPINE
     Indication: BIPOLAR DISORDER
     Route: 048
     Dates: start: 20161207, end: 20161211
  2. CARBAMAZEPINE. [Suspect]
     Active Substance: CARBAMAZEPINE
     Indication: BIPOLAR I DISORDER
     Route: 048
     Dates: start: 20161207, end: 20161211
  3. CARBAMAZEPINE. [Suspect]
     Active Substance: CARBAMAZEPINE
     Indication: MANIA
     Route: 048
     Dates: start: 20161207, end: 20161211

REACTIONS (5)
  - Skin exfoliation [None]
  - Hypersensitivity [None]
  - Dry skin [None]
  - Blister [None]
  - Burning sensation [None]

NARRATIVE: CASE EVENT DATE: 20161211
